FAERS Safety Report 5704700-2 (Version None)
Quarter: 2008Q2

REPORT INFORMATION
  Report Type: 
  Country: None (occurrence: None)
  Receive Date: 20080414
  Receipt Date: 20080401
  Transmission Date: 20081010
  Serious: Yes (Death)
  Sender: FDA-Public Use
  Company Number: TN-SANOFI-SYNTHELABO-A01200803714

PATIENT
  Age: 17 Year
  Sex: Female

DRUGS (2)
  1. PHENOXYMETHYL PENICILLIN [Concomitant]
     Indication: ACUTE TONSILLITIS
     Dosage: UNK
     Route: 065
  2. KERLONE [Suspect]
     Indication: MEDICATION ERROR
     Route: 048
     Dates: start: 20080225, end: 20080225

REACTIONS (3)
  - ACCIDENTAL OVERDOSE [None]
  - CARDIAC ARREST [None]
  - MEDICATION ERROR [None]
